FAERS Safety Report 4342083-3 (Version None)
Quarter: 2004Q2

REPORT INFORMATION
  Report Type: 
  Country: None (occurrence: None)
  Receive Date: 20040415
  Receipt Date: 20040406
  Transmission Date: 20050107
  Serious: Yes (Other)
  Sender: FDA-Public Use
  Company Number: CIP04000656

PATIENT
  Age: 57 Year
  Sex: Female

DRUGS (4)
  1. ACTONEL [Suspect]
     Indication: OSTEOPENIA
     Dosage: 35 MG ONE DOSE, ORAL
     Route: 048
     Dates: start: 20040307, end: 20040307
  2. LIPITOR [Concomitant]
  3. SYMTHROID (LEVOTHYROXINE SODIUM) [Concomitant]
  4. CALCIUM [Concomitant]

REACTIONS (3)
  - BACK PAIN [None]
  - MUSCLE SPASMS [None]
  - MYALGIA [None]
